FAERS Safety Report 19143553 (Version 1)
Quarter: 2021Q2

REPORT INFORMATION
  Report Type: Spontaneous
  Country: US (occurrence: US)
  Receive Date: 20210416
  Receipt Date: 20210416
  Transmission Date: 20210717
  Serious: No
  Sender: FDA-Public Use
  Company Number: US-TERSERA THERAPEUTICS LLC-2021TRS000279

PATIENT

DRUGS (1)
  1. XERMELO [Suspect]
     Active Substance: TELOTRISTAT ETHYL
     Indication: NEUROENDOCRINE TUMOUR
     Dosage: 250 MG, TID (1 TABLET BY MOUTH 3 TIMES DAILY)
     Route: 048

REACTIONS (12)
  - Haemorrhoids [Unknown]
  - Blood potassium decreased [Unknown]
  - Limb injury [Unknown]
  - Diarrhoea [Unknown]
  - Sciatica [Unknown]
  - Feeding disorder [Unknown]
  - Constipation [Unknown]
  - Back injury [Unknown]
  - Liver disorder [Unknown]
  - Dry skin [Unknown]
  - Alopecia [Unknown]
  - Asthenia [Unknown]
